FAERS Safety Report 11074998 (Version 2)
Quarter: 2015Q3

REPORT INFORMATION
  Report Type: Spontaneous
  Country: US (occurrence: US)
  Receive Date: 20150429
  Receipt Date: 20150814
  Transmission Date: 20151125
  Serious: No
  Sender: FDA-Public Use
  Company Number: US-JNJFOC-20150413718

PATIENT
  Sex: Female
  Weight: 84.37 kg

DRUGS (7)
  1. DURAGESIC [Suspect]
     Active Substance: FENTANYL
     Indication: OSTEOARTHRITIS
     Route: 062
     Dates: start: 201502
  2. PAXIL [Concomitant]
     Active Substance: PAROXETINE HYDROCHLORIDE
     Route: 065
  3. NEXIUM [Concomitant]
     Active Substance: ESOMEPRAZOLE MAGNESIUM
     Route: 065
  4. VALSARTAN, HYDROCHLOROTHIAZIDE [Concomitant]
     Indication: HYPERTENSION
     Route: 065
  5. DURAGESIC [Suspect]
     Active Substance: FENTANYL
     Indication: FIBROMYALGIA
     Route: 062
     Dates: start: 201502
  6. DURAGESIC [Suspect]
     Active Substance: FENTANYL
     Indication: FIBROMYALGIA
     Route: 062
     Dates: start: 2001
  7. DURAGESIC [Suspect]
     Active Substance: FENTANYL
     Indication: OSTEOARTHRITIS
     Route: 062
     Dates: start: 2001

REACTIONS (4)
  - Product adhesion issue [Unknown]
  - Underdose [Unknown]
  - Wrong technique in product usage process [Unknown]
  - Product quality issue [Unknown]
